FAERS Safety Report 11544854 (Version 1)
Quarter: 2015Q3

REPORT INFORMATION
  Report Type: Spontaneous
  Country: US (occurrence: None)
  Receive Date: 20150923
  Receipt Date: 20150923
  Transmission Date: 20151125
  Serious: Yes (Hospitalization)
  Sender: FDA-Public Use
  Company Number: None

PATIENT
  Age: 86 Year
  Sex: Female
  Weight: 63 kg

DRUGS (22)
  1. LOTREL [Concomitant]
     Active Substance: AMLODIPINE BESYLATE\BENAZEPRIL HYDROCHLORIDE
  2. VITAMIN C [Concomitant]
     Active Substance: ASCORBIC ACID
  3. GABAPENTIN. [Concomitant]
     Active Substance: GABAPENTIN
  4. REMERON [Concomitant]
     Active Substance: MIRTAZAPINE
  5. PROTONIX [Concomitant]
     Active Substance: PANTOPRAZOLE SODIUM
  6. PREDNISONE. [Concomitant]
     Active Substance: PREDNISONE
  7. SENNA [Concomitant]
     Active Substance: SENNA LEAF\SENNOSIDES\SENNOSIDES A AND B
  8. METHOTREXATE [Concomitant]
     Active Substance: METHOTREXATE
  9. DERAGESIC [Concomitant]
  10. NTG [Concomitant]
     Active Substance: NITROGLYCERIN
  11. MIRALAX [Concomitant]
     Active Substance: POLYETHYLENE GLYCOL 3350
  12. TRIMETHOPRIM 100 MG [Suspect]
     Active Substance: TRIMETHOPRIM
     Indication: URINARY TRACT INFECTION
     Route: 048
     Dates: start: 20150911, end: 20150921
  13. THERAGRAN [Concomitant]
     Active Substance: VITAMINS
  14. ASPIRIN. [Concomitant]
     Active Substance: ASPIRIN
  15. LIPITOR [Concomitant]
     Active Substance: ATORVASTATIN CALCIUM
  16. NORCO [Concomitant]
     Active Substance: ACETAMINOPHEN\HYDROCODONE BITARTRATE
  17. FOLIC ACID. [Concomitant]
     Active Substance: FOLIC ACID
  18. XALATAN [Concomitant]
     Active Substance: LATANOPROST
  19. LOPRESSOR [Concomitant]
     Active Substance: METOPROLOL TARTRATE
  20. CALCIUM +D3 [Concomitant]
     Active Substance: CALCIUM\CHOLECALCIFEROL
  21. DITROPAN [Concomitant]
     Active Substance: OXYBUTYNIN CHLORIDE
  22. VITAMIN E [Concomitant]
     Active Substance: .ALPHA.-TOCOPHEROL

REACTIONS (1)
  - Acute kidney injury [None]

NARRATIVE: CASE EVENT DATE: 20150921
